FAERS Safety Report 5709390-0 (Version None)
Quarter: 2008Q2

REPORT INFORMATION
  Report Type: 
  Country: None (occurrence: None)
  Receive Date: 20080417
  Receipt Date: 20080417
  Transmission Date: 20081010
  Serious: Yes (Hospitalization)
  Sender: FDA-Public Use
  Company Number: None

PATIENT
  Age: 48 Year
  Sex: Female
  Weight: 66.6788 kg

DRUGS (4)
  1. CHANTIX [Suspect]
     Indication: SMOKING CESSATION THERAPY
     Dosage: ORAL 0.5 7 DAYS-} 1.0 1 DAY
     Route: 048
     Dates: start: 20080326, end: 20080405
  2. LIC03 [Concomitant]
  3. PROZAC [Concomitant]
  4. SEROQUEL [Concomitant]

REACTIONS (7)
  - DEHYDRATION [None]
  - HALLUCINATIONS, MIXED [None]
  - HOMICIDAL IDEATION [None]
  - NAUSEA [None]
  - PSYCHOTIC DISORDER [None]
  - SUICIDAL IDEATION [None]
  - VOMITING [None]
